FAERS Safety Report 25273157 (Version 1)
Quarter: 2025Q2

REPORT INFORMATION
  Report Type: Spontaneous
  Country: FR (occurrence: FR)
  Receive Date: 20250506
  Receipt Date: 20250506
  Transmission Date: 20250716
  Serious: Yes (Other)
  Sender: MYLAN
  Company Number: None

PATIENT
  Age: 19 Year
  Sex: Female
  Weight: 60 kg

DRUGS (16)
  1. REMIFENTANIL [Suspect]
     Active Substance: REMIFENTANIL
     Indication: Anaesthesia
     Dates: start: 20250203, end: 20250203
  2. REMIFENTANIL [Suspect]
     Active Substance: REMIFENTANIL
     Route: 042
     Dates: start: 20250203, end: 20250203
  3. REMIFENTANIL [Suspect]
     Active Substance: REMIFENTANIL
     Route: 042
     Dates: start: 20250203, end: 20250203
  4. REMIFENTANIL [Suspect]
     Active Substance: REMIFENTANIL
     Dates: start: 20250203, end: 20250203
  5. PROPOFOL [Suspect]
     Active Substance: PROPOFOL
     Indication: Anaesthesia
     Dates: start: 20250203, end: 20250203
  6. PROPOFOL [Suspect]
     Active Substance: PROPOFOL
     Route: 042
     Dates: start: 20250203, end: 20250203
  7. PROPOFOL [Suspect]
     Active Substance: PROPOFOL
     Route: 042
     Dates: start: 20250203, end: 20250203
  8. PROPOFOL [Suspect]
     Active Substance: PROPOFOL
     Dates: start: 20250203, end: 20250203
  9. MIDAZOLAM [Suspect]
     Active Substance: MIDAZOLAM
     Indication: Anaesthesia
     Dates: start: 20250203, end: 20250203
  10. MIDAZOLAM [Suspect]
     Active Substance: MIDAZOLAM
     Route: 042
     Dates: start: 20250203, end: 20250203
  11. MIDAZOLAM [Suspect]
     Active Substance: MIDAZOLAM
     Route: 042
     Dates: start: 20250203, end: 20250203
  12. MIDAZOLAM [Suspect]
     Active Substance: MIDAZOLAM
     Dates: start: 20250203, end: 20250203
  13. CLONIDINE HYDROCHLORIDE [Suspect]
     Active Substance: CLONIDINE HYDROCHLORIDE
     Indication: Anaesthesia
     Dates: start: 20250203, end: 20250203
  14. CLONIDINE HYDROCHLORIDE [Suspect]
     Active Substance: CLONIDINE HYDROCHLORIDE
     Route: 042
     Dates: start: 20250203, end: 20250203
  15. CLONIDINE HYDROCHLORIDE [Suspect]
     Active Substance: CLONIDINE HYDROCHLORIDE
     Route: 042
     Dates: start: 20250203, end: 20250203
  16. CLONIDINE HYDROCHLORIDE [Suspect]
     Active Substance: CLONIDINE HYDROCHLORIDE
     Dates: start: 20250203, end: 20250203

REACTIONS (1)
  - Loss of consciousness [Recovered/Resolved]

NARRATIVE: CASE EVENT DATE: 20250203
